FAERS Safety Report 5704267-9 (Version None)
Quarter: 2008Q2

REPORT INFORMATION
  Report Type: 
  Country: None (occurrence: None)
  Receive Date: 20080414
  Receipt Date: 20080410
  Transmission Date: 20081010
  Serious: Yes (Death, Other)
  Sender: FDA-Public Use
  Company Number: PE-AVENTIS-200719854GDDC

PATIENT
  Age: 80 Year
  Sex: Male

DRUGS (4)
  1. ARAVA [Suspect]
     Indication: RHEUMATOID ARTHRITIS
     Dates: start: 20060811, end: 20070709
  2. PREDNISONE [Concomitant]
     Dosage: DOSE: 5-7.5 MG DAILY
  3. ETORICOXIB [Concomitant]
     Dosage: DOSE: 60-90 MG/DAY
  4. MELOXICAM [Concomitant]

REACTIONS (3)
  - HEPATIC FAILURE [None]
  - HEPATITIS B [None]
  - PNEUMONIA [None]
